FAERS Safety Report 10199370 (Version 2)
Quarter: 2014Q2

REPORT INFORMATION
  Report Type: Spontaneous
  Country: FR (occurrence: FR)
  Receive Date: 20140527
  Receipt Date: 20140527
  Transmission Date: 20141212
  Serious: Yes (Hospitalization)
  Sender: FDA-Public Use
  Company Number: FR-ELI_LILLY_AND_COMPANY-FR201404009018

PATIENT
  Age: 66 Year
  Sex: Male

DRUGS (13)
  1. ALIMTA [Suspect]
     Indication: LUNG ADENOCARCINOMA
     Dosage: 700 MG, CYCLICAL
     Route: 042
  2. FOLIC ACID [Concomitant]
     Indication: PREMEDICATION
  3. VITAMIN B12 [Concomitant]
  4. PLAVIX [Concomitant]
     Route: 065
  5. SOTALEX [Concomitant]
     Route: 065
  6. TERCIAN                            /00759301/ [Concomitant]
     Route: 065
  7. IMOVANE [Concomitant]
     Route: 065
  8. DAFALGAN [Concomitant]
     Route: 065
  9. INEXIUM                            /01479302/ [Concomitant]
     Route: 065
  10. LEXOMIL [Concomitant]
     Route: 065
  11. SOLUMEDROL [Concomitant]
     Indication: PREMEDICATION
     Route: 065
  12. CISPLATINE [Concomitant]
     Route: 065
  13. CYMBALTA [Concomitant]
     Route: 065

REACTIONS (5)
  - Haemorrhage [Unknown]
  - Septic shock [Recovered/Resolved]
  - Leukopenia [Recovered/Resolved]
  - Thrombocytopenia [Recovered/Resolved]
  - Febrile bone marrow aplasia [Recovered/Resolved]
